FAERS Safety Report 4510739-5 (Version None)
Quarter: 2004Q4

REPORT INFORMATION
  Report Type: 
  Country: None (occurrence: None)
  Receive Date: 20041122
  Receipt Date: 20041115
  Transmission Date: 20050328
  Serious: Yes (Hospitalization, Other)
  Sender: FDA-Public Use
  Company Number: 2004092105

PATIENT
  Age: 80 Year
  Sex: Female

DRUGS (16)
  1. NORVASC [Suspect]
     Indication: ILL-DEFINED DISORDER
     Dosage: (10 MG, 3 IN 1 WK), ORAL
     Route: 048
     Dates: start: 20041001, end: 20041015
  2. BISOPROLOL FUMARATE [Suspect]
     Indication: ILL-DEFINED DISORDER
     Dosage: 10 MG (5 MG, 1 D), ORAL
     Route: 048
     Dates: end: 20041014
  3. NIFEDIPINE [Concomitant]
     Indication: ILL-DEFINED DISORDER
     Dosage: 30 MG (30 MG, D), ORAL
     Route: 048
     Dates: end: 20041015
  4. PAROXETINE HCL [Suspect]
     Indication: ILL-DEFINED DISORDER
     Dosage: 60 MG (20 MG,UNKNOWN), ORAL
     Route: 048
  5. ALPRAZOLAM [Concomitant]
  6. PRAVASTATIN SODIUM [Concomitant]
  7. TORSEMIDE [Concomitant]
  8. ISOSORBIDE DINITRATE [Concomitant]
  9. IRBESARTAN [Concomitant]
  10. ASPIRIN [Concomitant]
  11. EZETIMIBE (EZETIMIBE) [Concomitant]
  12. MOLSIDOMINE (MOLSIDOMINE) [Concomitant]
  13. ALLOPURINOL [Concomitant]
  14. GERIAVIT ( [Concomitant]
  15. ACETAMINOPHEN [Concomitant]
  16. ALL OTHER THERAPEUTIC PRODUCTS [Concomitant]

REACTIONS (2)
  - BRADYCARDIA [None]
  - SICK SINUS SYNDROME [None]
